FAERS Safety Report 6416820-8 (Version None)
Quarter: 2009Q4

REPORT INFORMATION
  Report Type: 
  Country: None (occurrence: None)
  Receive Date: 20091027
  Receipt Date: 20091013
  Transmission Date: 20100525
  Serious: Yes (Hospitalization)
  Sender: FDA-Public Use
  Company Number: ZA-MYLANLABS-2009S1017794

PATIENT
  Age: 28 Year
  Sex: Female

DRUGS (7)
  1. ENALAPRIL [Suspect]
     Indication: HYPERTENSION
     Dosage: 10MG EVERY 12 HOURS
  2. ENALAPRIL [Suspect]
  3. PREDNISONE TAB [Concomitant]
     Indication: SYSTEMIC LUPUS ERYTHEMATOSUS
     Dosage: 60MG DAILY
  4. ATENOLOL [Concomitant]
     Dosage: 50MG DAILY
  5. AMLODIPINE [Concomitant]
     Dosage: 10MG DAILY
  6. FUROSEMIDE [Concomitant]
     Dosage: 40MG DAILY
  7. SIMVASTATIN [Concomitant]
     Dosage: 10MG DAILY

REACTIONS (2)
  - ANGIOEDEMA [None]
  - GRAND MAL CONVULSION [None]
